FAERS Safety Report 5940480-3 (Version None)
Quarter: 2008Q4

REPORT INFORMATION
  Report Type: 
  Country: None (occurrence: None)
  Receive Date: 20081104
  Receipt Date: 20081030
  Transmission Date: 20090506
  Serious: Yes (Other)
  Sender: FDA-Public Use
  Company Number: DE-BAYER-200829277GPV

PATIENT
  Age: 61 Year
  Sex: Male
  Weight: 100 kg

DRUGS (2)
  1. NEXAVAR [Suspect]
     Indication: HEPATIC NEOPLASM MALIGNANT
     Dosage: TOTAL DAILY DOSE: 800 MG
     Route: 048
     Dates: start: 20080401, end: 20080701
  2. RAPAMYCIN [Concomitant]
     Indication: IMMUNOSUPPRESSION
     Route: 065

REACTIONS (5)
  - B-CELL LYMPHOMA [None]
  - DIARRHOEA [None]
  - PANCYTOPENIA [None]
  - RASH [None]
  - SKIN REACTION [None]
